FAERS Safety Report 25184439 (Version 1)
Quarter: 2025Q2

REPORT INFORMATION
  Report Type: Spontaneous
  Country: US (occurrence: None)
  Receive Date: 20250409
  Receipt Date: 20250409
  Transmission Date: 20250716
  Serious: Yes (Hospitalization)
  Sender: FDA-CTU
  Company Number: None

PATIENT
  Age: 75 Year
  Sex: Male
  Weight: 69 kg

DRUGS (1)
  1. ZOLEDRONIC ACID [Suspect]
     Active Substance: ZOLEDRONIC ACID
     Indication: Metastases to bone

REACTIONS (8)
  - Acute kidney injury [None]
  - Renal impairment [None]
  - Coronary artery bypass [None]
  - Hypophagia [None]
  - Leukocytosis [None]
  - Blood uric acid increased [None]
  - Upper respiratory tract infection [None]
  - Drug hypersensitivity [None]

NARRATIVE: CASE EVENT DATE: 20241204
